FAERS Safety Report 5806094-0 (Version None)
Quarter: 2008Q3

REPORT INFORMATION
  Report Type: 
  Country: None (occurrence: None)
  Receive Date: 20080709
  Receipt Date: 20080709
  Transmission Date: 20090109
  Serious: No
  Sender: FDA-Public Use
  Company Number: None

PATIENT
  Age: 75 Year
  Sex: Male

DRUGS (2)
  1. PREDNISOLONE [Suspect]
     Indication: ATRIAL FIBRILLATION
     Dosage: 12 MG QWEEK PO
     Route: 048
     Dates: start: 20051212
  2. PREDNISONE TAB [Suspect]
     Dates: start: 20080321, end: 20080327

REACTIONS (5)
  - CHRONIC OBSTRUCTIVE PULMONARY DISEASE [None]
  - CONDITION AGGRAVATED [None]
  - DIARRHOEA [None]
  - FAECES DISCOLOURED [None]
  - VOMITING [None]
